FAERS Safety Report 12832886 (Version 1)
Quarter: 2016Q4

REPORT INFORMATION
  Report Type: Spontaneous
  Country: US (occurrence: US)
  Receive Date: 20161010
  Receipt Date: 20161010
  Transmission Date: 20170207
  Serious: Yes (Other)
  Sender: FDA-Public Use
  Company Number: US-BIOVITRUM-2016US0797

PATIENT
  Sex: Male
  Weight: 29 kg

DRUGS (2)
  1. KINERET [Suspect]
     Active Substance: ANAKINRA
     Indication: DEFICIENCY OF THE INTERLEUKIN-1 RECEPTOR ANTAGONIST
     Route: 058
     Dates: start: 2008
  2. PREDNISONE. [Concomitant]
     Active Substance: PREDNISONE
     Indication: ARTERITIS CORONARY
     Route: 048
     Dates: start: 20160410

REACTIONS (2)
  - Drug ineffective for unapproved indication [Unknown]
  - Vasculitis [Unknown]
